FAERS Safety Report 8967319 (Version 1)
Quarter: 2012Q4

REPORT INFORMATION
  Report Type: 
  Country: US (occurrence: US)
  Receive Date: 20121214
  Receipt Date: 20121214
  Transmission Date: 20130627
  Serious: No
  Sender: FDA-Public Use
  Company Number: US-GLAXOSMITHKLINE-A0994075A

PATIENT
  Sex: Female

DRUGS (1)
  1. FLUTICASONE [Suspect]
     Indication: MULTIPLE ALLERGIES
     Route: 065

REACTIONS (1)
  - Drug ineffective [Unknown]
